FAERS Safety Report 7439000-6 (Version None)
Quarter: 2011Q2

REPORT INFORMATION
  Report Type: 
  Country: None (occurrence: None)
  Receive Date: 20110427
  Receipt Date: 20110418
  Transmission Date: 20111010
  Serious: Yes (Other)
  Sender: FDA-Public Use
  Company Number: US-US-EMD SERONO, INC.-7054983

PATIENT
  Sex: Female
  Weight: 86 kg

DRUGS (5)
  1. ZYPREXA [Concomitant]
     Indication: DEPRESSION
  2. TRAVATAN [Concomitant]
  3. REBIF [Suspect]
     Indication: MULTIPLE SCLEROSIS
     Route: 058
     Dates: start: 20040819
  4. SYSTANE [Concomitant]
  5. PAROXETINE HCL [Concomitant]
     Indication: DEPRESSION

REACTIONS (3)
  - CATARACT [None]
  - DIABETES MELLITUS [None]
  - OPTIC NEURITIS [None]
